FAERS Safety Report 11805216 (Version 1)
Quarter: 2015Q4

REPORT INFORMATION
  Report Type: Spontaneous
  Country: PT (occurrence: PT)
  Receive Date: 20151206
  Receipt Date: 20151206
  Transmission Date: 20160305
  Serious: Yes (Other)
  Sender: FDA-Public Use
  Company Number: PT-MYLANLABS-2015M1041994

PATIENT

DRUGS (5)
  1. ULTRAMIDOL [Concomitant]
     Indication: ANXIETY
     Dosage: 3 MG, UNK
     Route: 048
  2. OMEPRAZOL MYLAN 20 MG [Suspect]
     Active Substance: OMEPRAZOLE
     Indication: HIATUS HERNIA
     Dosage: 20 MG, UNK
     Route: 048
  3. OMEPRAZOL MYLAN 20 MG [Suspect]
     Active Substance: OMEPRAZOLE
     Dosage: UNK
  4. TEGRETOL CR [Concomitant]
     Active Substance: CARBAMAZEPINE
     Indication: BALANCE DISORDER
     Dosage: 200 MG, UNK
     Route: 048
  5. VICTAN [Concomitant]
     Active Substance: ETHYL LOFLAZEPATE
     Indication: ANXIETY
     Dosage: 2 MG, UNK
     Route: 048

REACTIONS (3)
  - Quality of life decreased [Recovered/Resolved]
  - Drug ineffective [Recovered/Resolved]
  - Gastrooesophageal reflux disease [Recovered/Resolved]
